FAERS Safety Report 17001643 (Version 2)
Quarter: 2019Q4

REPORT INFORMATION
  Report Type: Spontaneous
  Country: US (occurrence: US)
  Receive Date: 20191106
  Receipt Date: 20191221
  Transmission Date: 20200122
  Serious: No
  Sender: FDA-Public Use
  Company Number: NVSC2019US022935

PATIENT
  Sex: Female

DRUGS (1)
  1. MEKINIST [Suspect]
     Active Substance: TRAMETINIB DIMETHYL SULFOXIDE
     Indication: LANGERHANS^ CELL HISTIOCYTOSIS
     Dosage: 0.5 MG, QD
     Route: 048
     Dates: start: 20190522

REACTIONS (3)
  - Visual impairment [Unknown]
  - Blister [Unknown]
  - Product use in unapproved indication [Unknown]
